FAERS Safety Report 8593402-3 (Version None)
Quarter: 2012Q3

REPORT INFORMATION
  Report Type: 
  Country: None (occurrence: None)
  Receive Date: 20120814
  Receipt Date: 20120809
  Transmission Date: 20120928
  Serious: Yes (Hospitalization, Other)
  Sender: FDA-Public Use
  Company Number: PHHY2012BR069479

PATIENT
  Sex: Female

DRUGS (2)
  1. XELODA [Concomitant]
     Indication: LUNG CANCER METASTATIC
     Dosage: 6 TABLETS (500 MG) DAILY AND 4 TABLETS (150 MG) DAILY
     Route: 048
  2. ONBREZ [Suspect]
     Indication: DYSPNOEA
     Dosage: 150 UG, QD

REACTIONS (3)
  - PNEUMONIA [None]
  - PLEURAL EFFUSION [None]
  - LUNG INFECTION [None]
